FAERS Safety Report 19909686 (Version 2)
Quarter: 2021Q4

REPORT INFORMATION
  Report Type: Spontaneous
  Country: BR (occurrence: BR)
  Receive Date: 20211002
  Receipt Date: 20211119
  Transmission Date: 20220303
  Serious: Yes (Other)
  Sender: FDA-Public Use
  Company Number: BR-ALEXION-A201715425

PATIENT
  Age: 33 Year
  Sex: Female
  Weight: 60 kg

DRUGS (2)
  1. SOLIRIS [Suspect]
     Active Substance: ECULIZUMAB
     Indication: Paroxysmal nocturnal haemoglobinuria
     Dosage: 600 MG, QW
     Route: 042
     Dates: start: 20150624, end: 20150715
  2. SOLIRIS [Suspect]
     Active Substance: ECULIZUMAB
     Dosage: 900 MG, Q2W
     Route: 042
     Dates: start: 20150722

REACTIONS (7)
  - Haemolysis [Unknown]
  - Platelet count decreased [Recovered/Resolved]
  - Abdominal discomfort [Unknown]
  - Appendicectomy [Unknown]
  - Procedural pain [Unknown]
  - Dysphagia [Unknown]
  - Haematuria [Unknown]

NARRATIVE: CASE EVENT DATE: 20170425
